FAERS Safety Report 9476734 (Version 1)
Quarter: 2013Q3

REPORT INFORMATION
  Report Type: Spontaneous
  Country: US (occurrence: US)
  Receive Date: 20130826
  Receipt Date: 20130826
  Transmission Date: 20140515
  Serious: Yes (Other)
  Sender: FDA-Public Use
  Company Number: US-BRISTOL-MYERS SQUIBB COMPANY-17438953

PATIENT
  Age: 69 Year
  Sex: Female

DRUGS (2)
  1. KENALOG-40 [Suspect]
     Indication: CARPAL TUNNEL SYNDROME
     Dates: start: 201301
  2. XYLOCAINE [Suspect]
     Dates: start: 201301

REACTIONS (1)
  - Anaphylactoid reaction [Unknown]
